FAERS Safety Report 16100680 (Version 2)
Quarter: 2019Q2

REPORT INFORMATION
  Report Type: Spontaneous
  Country: US (occurrence: US)
  Receive Date: 20190321
  Receipt Date: 20190403
  Transmission Date: 20190711
  Serious: Yes (Other)
  Sender: FDA-Public Use
  Company Number: US-JAZZ-JPI-P-008092

PATIENT
  Age: 22 Year
  Sex: Female
  Weight: 56.82 kg

DRUGS (6)
  1. XYREM [Suspect]
     Active Substance: SODIUM OXYBATE
     Indication: CATAPLEXY
     Dosage: 4.5 G, BID
     Route: 048
  2. OMEPRAZOLE. [Concomitant]
     Active Substance: OMEPRAZOLE
  3. XYREM [Suspect]
     Active Substance: SODIUM OXYBATE
     Indication: NARCOLEPSY
     Dosage: 2.25 G, BID
     Route: 048
     Dates: start: 20081210
  4. SUCRALFATE. [Concomitant]
     Active Substance: SUCRALFATE
  5. XYREM [Suspect]
     Active Substance: SODIUM OXYBATE
     Dosage: 3 G, BID
     Route: 048
  6. ETHINYLESTRADIOL [Concomitant]
     Active Substance: ETHINYL ESTRADIOL

REACTIONS (18)
  - Urine analysis abnormal [Unknown]
  - Rhinorrhoea [Recovering/Resolving]
  - Blepharospasm [Not Recovered/Not Resolved]
  - Salivary hypersecretion [Recovering/Resolving]
  - Vomiting [Recovered/Resolved]
  - Nausea [Unknown]
  - Liver function test increased [Recovered/Resolved]
  - Cystitis [Unknown]
  - Sinusitis [Recovering/Resolving]
  - Blood cholesterol increased [Unknown]
  - Therapeutic response decreased [Unknown]
  - Sinus disorder [Recovering/Resolving]
  - Tonsillectomy [Unknown]
  - Procedural pain [Not Recovered/Not Resolved]
  - Condition aggravated [Recovering/Resolving]
  - Hypersensitivity [Unknown]
  - Adenoidectomy [Unknown]
  - Gastrooesophageal reflux disease [Unknown]

NARRATIVE: CASE EVENT DATE: 200901
